FAERS Safety Report 17014197 (Version 2)
Quarter: 2019Q4

REPORT INFORMATION
  Report Type: Report from Study
  Country: None (occurrence: BE)
  Receive Date: 20191111
  Receipt Date: 20191125
  Transmission Date: 20200122
  Serious: Yes (Death, Hospitalization, Other)
  Sender: FDA-Public Use
  Company Number: BE-ABBVIE-19K-013-2996964-00

PATIENT
  Sex: Female

DRUGS (3)
  1. DUODOPA [Suspect]
     Active Substance: CARBIDOPA\LEVODOPA
     Dosage: DOSES CONTINUOUSLY MONITORED AND ADAPTED
     Route: 050
     Dates: start: 20150901, end: 20190902
  2. DUODOPA [Suspect]
     Active Substance: CARBIDOPA\LEVODOPA
     Dosage: MD=0.3ML, CD=1.4ML/HR DURING 16HRS, ED=1.2ML
     Route: 050
     Dates: start: 20190902
  3. DUODOPA [Suspect]
     Active Substance: CARBIDOPA\LEVODOPA
     Indication: PARKINSON^S DISEASE
     Dosage: MD=3.5ML, CD=1ML/HR DURING 16HRS, ED=0.8ML
     Route: 050
     Dates: start: 20150831, end: 20150901

REACTIONS (4)
  - Regurgitation [Unknown]
  - Respiratory disorder [Unknown]
  - General physical health deterioration [Unknown]
  - Pneumonia [Fatal]
